FAERS Safety Report 14989223 (Version 1)
Quarter: 2018Q2

REPORT INFORMATION
  Report Type: Spontaneous
  Country: BE (occurrence: BE)
  Receive Date: 20180608
  Receipt Date: 20180608
  Transmission Date: 20180711
  Serious: Yes (Other)
  Sender: FDA-Public Use
  Company Number: BE-009507513-1802BEL002099

PATIENT
  Age: 35 Year
  Sex: Female
  Weight: 55 kg

DRUGS (1)
  1. IMPLANON [Suspect]
     Active Substance: ETONOGESTREL
     Indication: CONTRACEPTION
     Dosage: 1 IMPLANT, UNK
     Route: 059
     Dates: start: 20170915, end: 20180129

REACTIONS (10)
  - Malaise [Unknown]
  - Headache [Unknown]
  - Insomnia [Unknown]
  - Maternal exposure during pregnancy [Recovered/Resolved]
  - Breast discomfort [Unknown]
  - Dizziness [Unknown]
  - Urinary tract infection [Unknown]
  - Delivery [Recovered/Resolved]
  - Acne [Unknown]
  - Amenorrhoea [Unknown]

NARRATIVE: CASE EVENT DATE: 201709
